FAERS Safety Report 20200734 (Version 1)
Quarter: 2021Q4

REPORT INFORMATION
  Report Type: Spontaneous
  Country: US (occurrence: None)
  Receive Date: 20211217
  Receipt Date: 20211217
  Transmission Date: 20220304
  Serious: No
  Sender: FDA-Public Use
  Company Number: None

PATIENT

DRUGS (4)
  1. DIPHENHYDRAMINE HYDROCHLORIDE [Suspect]
     Active Substance: DIPHENHYDRAMINE HYDROCHLORIDE
     Route: 042
  2. LORAZEPAM [Suspect]
     Active Substance: LORAZEPAM
     Route: 042
  3. ACETAMINOPHEN [Suspect]
     Active Substance: ACETAMINOPHEN
     Route: 042
  4. FLUMAZENIL [Suspect]
     Active Substance: FLUMAZENIL
     Route: 042

REACTIONS (4)
  - Incorrect drug administration rate [None]
  - Respiration abnormal [None]
  - Device programming error [None]
  - Hyporesponsive to stimuli [None]
